FAERS Safety Report 18581731 (Version 1)
Quarter: 2020Q4

REPORT INFORMATION
  Report Type: Spontaneous
  Country: US (occurrence: US)
  Receive Date: 20201203
  Receipt Date: 20201203
  Transmission Date: 20210114
  Serious: No
  Sender: FDA-Public Use
  Company Number: None

PATIENT
  Age: 39 Year
  Sex: Female

DRUGS (2)
  1. BUPRENIRPHINE-NALOXONE 8-2MG TABS [Concomitant]
     Dates: start: 20191205, end: 20201202
  2. BUPRENORPHINE-NALOXONE TABS 8-2MG [Suspect]
     Active Substance: BUPRENORPHINE\NALOXONE
     Indication: DRUG USE DISORDER
     Route: 060
     Dates: start: 20191205, end: 20201202

REACTIONS (4)
  - Nausea [None]
  - Gastric disorder [None]
  - Diarrhoea [None]
  - Vomiting [None]

NARRATIVE: CASE EVENT DATE: 20201201
